FAERS Safety Report 5416788-7 (Version None)
Quarter: 2007Q3

REPORT INFORMATION
  Report Type: 
  Country: None (occurrence: None)
  Receive Date: 20070816
  Receipt Date: 20070808
  Transmission Date: 20080115
  Serious: Yes (Other)
  Sender: FDA-Public Use
  Company Number: JP-AMGEN-US233066

PATIENT
  Sex: Male
  Weight: 71 kg

DRUGS (6)
  1. ENBREL [Suspect]
     Indication: RHEUMATOID ARTHRITIS
     Route: 058
     Dates: start: 20061127
  2. PREDNISOLONE [Concomitant]
     Indication: RHEUMATOID ARTHRITIS
     Route: 048
     Dates: start: 20060314
  3. RIDAURA [Concomitant]
     Indication: RHEUMATOID ARTHRITIS
     Dosage: TABLET; DOSE AND FREQUENCY NOT SPECIFIED
     Route: 048
     Dates: start: 20051102
  4. METHOTREXATE [Concomitant]
     Indication: RHEUMATOID ARTHRITIS
     Dosage: TABLET; TWICE WEEKLY DOSE NOT SPECIFIED
     Route: 048
     Dates: start: 19970601
  5. METHOTREXATE [Concomitant]
     Route: 048
     Dates: start: 20060509
  6. RIMATIL [Concomitant]
     Indication: RHEUMATOID ARTHRITIS
     Dosage: TABLET; DOSE AND FREQUENCY NOT SPECIFIED
     Route: 048
     Dates: start: 20051102

REACTIONS (3)
  - NASOPHARYNGITIS [None]
  - PRODUCTIVE COUGH [None]
  - TUBERCULOSIS [None]
